FAERS Safety Report 6862426-6 (Version None)
Quarter: 2010Q3

REPORT INFORMATION
  Report Type: 
  Country: None (occurrence: None)
  Receive Date: 20100528
  Receipt Date: 20100209
  Transmission Date: 20110219
  Serious: Yes (Hospitalization)
  Sender: FDA-Public Use
  Company Number: CIP10000301

PATIENT
  Sex: Female

DRUGS (1)
  1. ACTONEL [Suspect]
     Dosage: ORAL
     Route: 048

REACTIONS (3)
  - ARTHRALGIA [None]
  - BONE PAIN [None]
  - MYALGIA [None]
